FAERS Safety Report 8837073 (Version 1)
Quarter: 2012Q4

REPORT INFORMATION
  Report Type: 
  Country: CA (occurrence: CA)
  Receive Date: 20121012
  Receipt Date: 20121012
  Transmission Date: 20130627
  Serious: Yes (Other)
  Sender: FDA-Public Use
  Company Number: CA-PFIZER INC-2012250748

PATIENT
  Sex: Female

DRUGS (2)
  1. LYRICA [Suspect]
     Dosage: UNK
     Dates: start: 2009, end: 2012
  2. GABAPENTIN [Suspect]
     Dosage: UNK

REACTIONS (9)
  - Cardiac failure congestive [Unknown]
  - Suicidal ideation [Unknown]
  - Road traffic accident [Unknown]
  - Dyslexia [Unknown]
  - Amnesia [Unknown]
  - Vision blurred [Unknown]
  - Tooth loss [Unknown]
  - Feeling abnormal [Unknown]
  - Anger [Not Recovered/Not Resolved]
